FAERS Safety Report 7574174-8 (Version None)
Quarter: 2011Q2

REPORT INFORMATION
  Report Type: 
  Country: None (occurrence: None)
  Receive Date: 20110627
  Receipt Date: 20110617
  Transmission Date: 20111010
  Serious: Yes (Hospitalization)
  Sender: FDA-Public Use
  Company Number: PHHO2011CA10290

PATIENT
  Sex: Female
  Weight: 49.7 kg

DRUGS (5)
  1. PROGRAF [Suspect]
     Indication: RENAL TRANSPLANT
     Dosage: 4/3.5 MG DAILY
     Route: 048
     Dates: start: 20110215
  2. PREDNISONE [Suspect]
     Indication: RENAL TRANSPLANT
     Dosage: 5 MG, QD
     Route: 048
     Dates: start: 20110221
  3. PANTOPRAZOLE SODIUM [Concomitant]
     Indication: PROPHYLAXIS
  4. SEPTRA [Concomitant]
     Indication: INFECTION PROPHYLAXIS
  5. CERTICAN [Suspect]
     Indication: RENAL TRANSPLANT
     Dosage: 2.5 MG, BID
     Route: 048
     Dates: start: 20110215

REACTIONS (1)
  - GASTROENTERITIS [None]
